FAERS Safety Report 8278470-0 (Version None)
Quarter: 2012Q2

REPORT INFORMATION
  Report Type: 
  Country: None (occurrence: None)
  Receive Date: 20120412
  Receipt Date: 20111027
  Transmission Date: 20120825
  Serious: No
  Sender: FDA-Public Use
  Company Number: US-ASTRAZENECA-2011SE65390

PATIENT
  Sex: Female

DRUGS (6)
  1. KLONOPIN [Concomitant]
     Indication: ANXIETY
  2. NEXIUM [Suspect]
     Route: 048
     Dates: start: 20110926
  3. REMERON [Concomitant]
     Indication: ANXIETY
  4. CHOLESTEROL MEDICINE [Concomitant]
  5. STEROID [Concomitant]
  6. SYNTHROID [Concomitant]
     Indication: HYPOTHYROIDISM

REACTIONS (8)
  - CONSTIPATION [None]
  - HOT FLUSH [None]
  - MYALGIA [None]
  - NAUSEA [None]
  - ERUCTATION [None]
  - ABDOMINAL PAIN [None]
  - OFF LABEL USE [None]
  - FLATULENCE [None]
